FAERS Safety Report 4773304-0 (Version None)
Quarter: 2005Q3

REPORT INFORMATION
  Report Type: 
  Country: None (occurrence: None)
  Receive Date: 20050916
  Receipt Date: 20050901
  Transmission Date: 20060218
  Serious: Yes (Other)
  Sender: FDA-Public Use
  Company Number: 2005-01872

PATIENT
  Age: 70 Year
  Sex: Female
  Weight: 91.6 kg

DRUGS (4)
  1. VELCADE [Suspect]
     Indication: MULTIPLE MYELOMA
     Dates: start: 20050201, end: 20050101
  2. THALOMID [Suspect]
     Indication: MULTIPLE MYELOMA
     Dosage: SEE IMAGE
     Route: 048
     Dates: start: 20041116, end: 20050110
  3. THALOMID [Suspect]
     Indication: MULTIPLE MYELOMA
     Dosage: SEE IMAGE
     Route: 048
     Dates: start: 20050111, end: 20050605
  4. ZOLOFT [Concomitant]

REACTIONS (6)
  - ASTHENIA [None]
  - COLITIS [None]
  - DEPRESSION [None]
  - DIARRHOEA [None]
  - GASTRITIS [None]
  - PROTEIN URINE PRESENT [None]
